FAERS Safety Report 15847284 (Version 1)
Quarter: 2019Q1

REPORT INFORMATION
  Report Type: Spontaneous
  Country: US (occurrence: US)
  Receive Date: 20190121
  Receipt Date: 20190121
  Transmission Date: 20190417
  Serious: No
  Sender: FDA-Public Use
  Company Number: US-AMGEN-USASP2019006452

PATIENT
  Age: 57 Year
  Sex: Male

DRUGS (2)
  1. SENSIPAR [Suspect]
     Active Substance: CINACALCET HYDROCHLORIDE
     Indication: HYPERPARATHYROIDISM SECONDARY
     Dosage: 30 MG, QD
     Route: 065
     Dates: start: 201811
  2. SENSIPAR [Suspect]
     Active Substance: CINACALCET HYDROCHLORIDE
     Dosage: 60 MG, QD
     Route: 065
     Dates: start: 20190111

REACTIONS (2)
  - Drug ineffective [Unknown]
  - Intentional product misuse [Unknown]
